FAERS Safety Report 21053271 (Version 3)
Quarter: 2022Q3

REPORT INFORMATION
  Report Type: Spontaneous
  Country: BR (occurrence: BR)
  Receive Date: 20220707
  Receipt Date: 20220808
  Transmission Date: 20221026
  Serious: No
  Sender: FDA-Public Use
  Company Number: BR-GE HEALTHCARE-2022CSU003999

PATIENT
  Age: 35 Year
  Sex: Male
  Weight: 69 kg

DRUGS (4)
  1. VISIPAQUE [Suspect]
     Active Substance: IODIXANOL
     Indication: Positron emission tomogram
     Dosage: 110 ML AT 2.5 ML/SEC BY INJECTOR VIA PERIPHERAL ACCESS WITH 20 GAUGE JELCO IN RT UPPER LIMB, ONCE
     Route: 042
     Dates: start: 20220506, end: 20220506
  2. VISIPAQUE [Suspect]
     Active Substance: IODIXANOL
     Indication: Neoplasm malignant
  3. FEXOFENADINE HYDROCHLORIDE [Concomitant]
     Active Substance: FEXOFENADINE HYDROCHLORIDE
     Indication: Allergy prophylaxis
     Dosage: 120 MG, SINGLE
     Route: 048
     Dates: start: 20220506, end: 20220506
  4. SALINE [Concomitant]
     Active Substance: SODIUM CHLORIDE
     Dosage: UNK
     Dates: start: 20220506, end: 20220506

REACTIONS (4)
  - Petechiae [Recovered/Resolved]
  - Skin exfoliation [Recovered/Resolved]
  - Pruritus [Recovered/Resolved]
  - Erythema [Recovered/Resolved]

NARRATIVE: CASE EVENT DATE: 20220507
